FAERS Safety Report 8238763-X (Version None)
Quarter: 2012Q1

REPORT INFORMATION
  Report Type: 
  Country: None (occurrence: None)
  Receive Date: 20120327
  Receipt Date: 20120312
  Transmission Date: 20120608
  Serious: Yes (Other)
  Sender: FDA-Public Use
  Company Number: CA-WATSON-2012-04711

PATIENT
  Age: 4 Week
  Sex: Female

DRUGS (2)
  1. METHOTREXATE [Suspect]
     Indication: FOETAL EXPOSURE DURING PREGNANCY
  2. HYDROXYCHLOROQUINE SULFATE [Suspect]
     Indication: FOETAL EXPOSURE DURING PREGNANCY
     Dosage: UNK MG, DAILY
     Route: 064

REACTIONS (1)
  - ANTERIOR CHAMBER CLEAVAGE SYNDROME [None]
